FAERS Safety Report 9085887 (Version 1)
Quarter: 2013Q1

REPORT INFORMATION
  Report Type: Report from Study
  Country: US (occurrence: US)
  Receive Date: 20130131
  Receipt Date: 20130131
  Transmission Date: 20140127
  Serious: No
  Sender: FDA-Public Use
  Company Number: US-ABBOTT-12P-163-0993734-00

PATIENT
  Age: 59 Year
  Sex: Female

DRUGS (4)
  1. HUMIRA [Suspect]
     Indication: CROHN^S DISEASE
     Dosage: LOADING DOSE
     Dates: start: 20120921, end: 20120921
  2. HUMIRA [Suspect]
     Dates: start: 20121005
  3. PENTASA [Concomitant]
     Indication: PRODUCT USED FOR UNKNOWN INDICATION
     Dosage: 2 CAPSULES THREE TIMES A DAY
  4. AZATHIOPRINE [Concomitant]
     Indication: PRODUCT USED FOR UNKNOWN INDICATION
     Dosage: 2 TABLETS IN THE AM AND ONE AT NIGHT

REACTIONS (5)
  - Fatigue [Not Recovered/Not Resolved]
  - Immunosuppression [Not Recovered/Not Resolved]
  - Swelling face [Unknown]
  - Anxiety [Unknown]
  - Insomnia [Unknown]
